FAERS Safety Report 12798295 (Version 10)
Quarter: 2018Q3

REPORT INFORMATION
  Report Type: Report from Study
  Country: US (occurrence: US)
  Receive Date: 20160930
  Receipt Date: 20180904
  Transmission Date: 20181010
  Serious: Yes (Hospitalization, Other)
  Sender: FDA-Public Use
  Company Number: US-JNJFOC-20160821580

PATIENT
  Age: 73 Year
  Sex: Male

DRUGS (39)
  1. IMBRUVICA [Suspect]
     Active Substance: IBRUTINIB
     Indication: CHRONIC LYMPHOCYTIC LEUKAEMIA
     Route: 048
     Dates: start: 20161004
  2. LOSARTAN. [Concomitant]
     Active Substance: LOSARTAN
  3. DORZOLAMIDE [Concomitant]
     Active Substance: DORZOLAMIDE
  4. LIDOCAINE. [Concomitant]
     Active Substance: LIDOCAINE
  5. IMBRUVICA [Suspect]
     Active Substance: IBRUTINIB
     Indication: ACUTE LYMPHOCYTIC LEUKAEMIA
     Route: 048
     Dates: end: 20180426
  6. PROTONIX [Concomitant]
     Active Substance: PANTOPRAZOLE SODIUM
  7. HYDROXYCHLOROQUINE [Concomitant]
     Active Substance: HYDROXYCHLOROQUINE
  8. TRAMADOL. [Concomitant]
     Active Substance: TRAMADOL
  9. FLOMAX [Concomitant]
     Active Substance: TAMSULOSIN HYDROCHLORIDE
  10. POTASSIUM [Concomitant]
     Active Substance: POTASSIUM
  11. IMBRUVICA [Suspect]
     Active Substance: IBRUTINIB
     Indication: CHRONIC LYMPHOCYTIC LEUKAEMIA
     Route: 048
     Dates: start: 20160813, end: 2016
  12. NORVASC [Concomitant]
     Active Substance: AMLODIPINE BESYLATE
  13. OXYBUTYNIN. [Concomitant]
     Active Substance: OXYBUTYNIN CHLORIDE
  14. CYCLOBENZAPRINE. [Concomitant]
     Active Substance: CYCLOBENZAPRINE
  15. BUSPAR [Concomitant]
     Active Substance: BUSPIRONE HYDROCHLORIDE
  16. LACTULOSE. [Concomitant]
     Active Substance: LACTULOSE
  17. LINZESS [Concomitant]
     Active Substance: LINACLOTIDE
  18. IMBRUVICA [Suspect]
     Active Substance: IBRUTINIB
     Indication: ACUTE LYMPHOCYTIC LEUKAEMIA
     Route: 048
     Dates: start: 20160813, end: 2016
  19. ALLOPURINOL. [Concomitant]
     Active Substance: ALLOPURINOL
  20. HCTZ [Concomitant]
     Active Substance: HYDROCHLOROTHIAZIDE
  21. FLUTICASONE. [Concomitant]
     Active Substance: FLUTICASONE
  22. MAGNESIUM [Concomitant]
     Active Substance: MAGNESIUM
  23. ACETAMINOPHEN AND CODEINE [Concomitant]
     Active Substance: ACETAMINOPHEN\CODEINE PHOSPHATE
  24. NICOTINE. [Concomitant]
     Active Substance: NICOTINE
  25. VITAMIN D [Concomitant]
     Active Substance: CHOLECALCIFEROL
  26. TYLENOL [Concomitant]
     Active Substance: ACETAMINOPHEN
  27. FERROUS FUMARATE [Concomitant]
     Active Substance: FERROUS FUMARATE
  28. SILDENAFIL. [Concomitant]
     Active Substance: SILDENAFIL
  29. ALPHAGAN P [Concomitant]
     Active Substance: BRIMONIDINE TARTRATE
  30. IMBRUVICA [Suspect]
     Active Substance: IBRUTINIB
     Indication: ACUTE LYMPHOCYTIC LEUKAEMIA
     Route: 048
     Dates: start: 20160809
  31. IMBRUVICA [Suspect]
     Active Substance: IBRUTINIB
     Indication: ACUTE LYMPHOCYTIC LEUKAEMIA
     Route: 048
     Dates: start: 20161004
  32. IMBRUVICA [Suspect]
     Active Substance: IBRUTINIB
     Indication: CHRONIC LYMPHOCYTIC LEUKAEMIA
     Route: 048
     Dates: end: 20180426
  33. IMBRUVICA [Suspect]
     Active Substance: IBRUTINIB
     Indication: CHRONIC LYMPHOCYTIC LEUKAEMIA
     Route: 048
     Dates: start: 20160809
  34. ZOLEDRONIC ACID [Concomitant]
     Active Substance: ZOLEDRONIC ACID
  35. BISACODYL. [Concomitant]
     Active Substance: BISACODYL
  36. DOCUSATE SODIUM. [Concomitant]
     Active Substance: DOCUSATE SODIUM
  37. MELATONIN [Concomitant]
     Active Substance: MELATONIN
  38. APAP [Concomitant]
     Active Substance: ACETAMINOPHEN
  39. LUMIGAN [Concomitant]
     Active Substance: BIMATOPROST

REACTIONS (19)
  - Pneumothorax [Unknown]
  - Throat irritation [Unknown]
  - Dyspepsia [Not Recovered/Not Resolved]
  - Pleural effusion [Not Recovered/Not Resolved]
  - Epistaxis [Unknown]
  - Asthenia [Not Recovered/Not Resolved]
  - Weight increased [Unknown]
  - Pneumonia [Unknown]
  - Eructation [Unknown]
  - Sputum discoloured [Unknown]
  - Off label use [Unknown]
  - Product use in unapproved indication [Unknown]
  - Fatigue [Not Recovered/Not Resolved]
  - Productive cough [Not Recovered/Not Resolved]
  - Insomnia [Unknown]
  - Constipation [Not Recovered/Not Resolved]
  - Anorectal discomfort [Recovered/Resolved]
  - Nasal congestion [Unknown]
  - Blood pressure increased [Unknown]

NARRATIVE: CASE EVENT DATE: 20160813
